FAERS Safety Report 20150845 (Version 1)
Quarter: 2021Q4

REPORT INFORMATION
  Report Type: Spontaneous
  Country: US (occurrence: None)
  Receive Date: 20211206
  Receipt Date: 20211206
  Transmission Date: 20220303
  Serious: Yes (Death, Hospitalization, Other)
  Sender: FDA-Public Use
  Company Number: US-ROCHE-2967314

PATIENT
  Sex: Female

DRUGS (4)
  1. XELODA [Suspect]
     Active Substance: CAPECITABINE
     Indication: Chemotherapy
     Route: 065
     Dates: start: 202107
  2. IBRANCE [Suspect]
     Active Substance: PALBOCICLIB
     Indication: Neoplasm malignant
     Route: 065
     Dates: start: 202106
  3. ELIQUIS [Concomitant]
     Active Substance: APIXABAN
  4. TRAMADOL [Concomitant]
     Active Substance: TRAMADOL
     Indication: Pain

REACTIONS (2)
  - Malignant neoplasm progression [Unknown]
  - Illness [Fatal]

NARRATIVE: CASE EVENT DATE: 20210601
